FAERS Safety Report 5260916-3 (Version None)
Quarter: 2007Q1

REPORT INFORMATION
  Report Type: 
  Country: None (occurrence: None)
  Receive Date: 20070309
  Receipt Date: 20070306
  Transmission Date: 20070707
  Serious: Yes (Other)
  Sender: FDA-Public Use
  Company Number: JP-BRACCO-BRO-010952

PATIENT
  Sex: Female

DRUGS (10)
  1. IOPAMIRON [Suspect]
     Route: 042
     Dates: start: 20061114, end: 20061114
  2. IOPAMIRON [Suspect]
     Indication: SHUNT OCCLUSION
     Route: 042
     Dates: start: 20061114, end: 20061114
  3. SOLU-MEDROL [Concomitant]
     Route: 050
     Dates: start: 20061114, end: 20061114
  4. DEPAS [Concomitant]
     Route: 050
  5. RHYTHMY [Concomitant]
     Route: 050
  6. ADALAT [Concomitant]
     Route: 050
  7. TANATRIL [Concomitant]
     Route: 050
  8. ASPIRIN [Concomitant]
     Route: 050
  9. PROPACALL [Concomitant]
     Route: 050
  10. ABBOKINASE [Concomitant]
     Route: 042
     Dates: start: 20061114, end: 20061115

REACTIONS (1)
  - MUCOSAL ULCERATION [None]
